FAERS Safety Report 9106443 (Version 2)
Quarter: 2013Q1

REPORT INFORMATION
  Report Type: Spontaneous
  Country: AT (occurrence: AT)
  Receive Date: 20130221
  Receipt Date: 20130311
  Transmission Date: 20140127
  Serious: Yes (Other)
  Sender: FDA-Public Use
  Company Number: AT-ROCHE-1189402

PATIENT
  Age: 59 Year
  Sex: Female
  Weight: 60 kg

DRUGS (21)
  1. XELODA [Suspect]
     Indication: BREAST CANCER METASTATIC
     Route: 065
     Dates: start: 201006, end: 201007
  2. XELODA [Suspect]
     Indication: METASTASES TO LIVER
     Route: 048
     Dates: start: 20100708, end: 20100719
  3. XELODA [Suspect]
     Indication: METASTASES TO CENTRAL NERVOUS SYSTEM
     Route: 048
     Dates: start: 20120711, end: 20120806
  4. AVASTIN [Suspect]
     Indication: BREAST CANCER METASTATIC
     Route: 065
     Dates: start: 201006, end: 201007
  5. AVASTIN [Suspect]
     Indication: METASTASES TO LIVER
     Route: 065
     Dates: start: 201007, end: 201101
  6. AVASTIN [Suspect]
     Route: 065
     Dates: start: 201101, end: 201103
  7. AVASTIN [Suspect]
     Route: 042
     Dates: start: 20100708, end: 20110316
  8. CAELYX [Concomitant]
     Route: 065
     Dates: start: 201104, end: 201109
  9. LAPATINIB [Concomitant]
     Route: 065
     Dates: start: 201104, end: 201109
  10. LAPATINIB [Concomitant]
     Route: 065
     Dates: start: 201109, end: 201202
  11. TYVERB [Concomitant]
     Indication: BREAST CANCER METASTATIC
     Dosage: DAY 1-21
     Route: 048
     Dates: start: 20120711, end: 20120809
  12. TYVERB [Concomitant]
     Indication: METASTASES TO LIVER
  13. TYVERB [Concomitant]
     Indication: METASTASES TO CENTRAL NERVOUS SYSTEM
  14. PACLITAXEL [Concomitant]
     Route: 065
     Dates: start: 201006, end: 201107
  15. VINORELBINE [Concomitant]
     Route: 065
     Dates: start: 201203, end: 201206
  16. CARBOPLATIN [Concomitant]
     Route: 065
     Dates: start: 20120814, end: 201212
  17. PERTUZUMAB [Concomitant]
     Route: 065
     Dates: start: 201210, end: 201212
  18. TRASTUZUMAB [Concomitant]
     Route: 065
     Dates: start: 200809, end: 200909
  19. TRASTUZUMAB [Concomitant]
     Route: 065
     Dates: start: 201109, end: 201202
  20. TRASTUZUMAB [Concomitant]
     Route: 065
     Dates: start: 201203, end: 201206
  21. TRASTUZUMAB [Concomitant]
     Route: 065
     Dates: start: 20120814, end: 201212

REACTIONS (4)
  - Burning sensation [Recovered/Resolved]
  - Blister [Recovered/Resolved]
  - Cheilitis [Recovered/Resolved]
  - Dihydropyrimidine dehydrogenase deficiency [Not Recovered/Not Resolved]
